FAERS Safety Report 9915637 (Version 1)
Quarter: 2014Q1

REPORT INFORMATION
  Report Type: Spontaneous
  Country: GB (occurrence: None)
  Receive Date: 20140218
  Receipt Date: 20140218
  Transmission Date: 20141002
  Serious: Yes (Other)
  Sender: FDA-Public Use
  Company Number: FK201400423

PATIENT
  Age: 79 Year
  Sex: Female

DRUGS (3)
  1. METHOTREXATE [Suspect]
     Indication: PRODUCT USED FOR UNKNOWN INDICATION
     Route: 048
  2. LIVIAL [Suspect]
     Indication: DYSPAREUNIA
     Route: 048
  3. VAGIFEM [Concomitant]

REACTIONS (18)
  - Hyperkeratosis [None]
  - Spinal deformity [None]
  - Gingival recession [None]
  - Gait disturbance [None]
  - Osteoarthritis [None]
  - Tooth loss [None]
  - Umbilical hernia [None]
  - General physical health deterioration [None]
  - Incorrect dose administered [None]
  - Resorption bone increased [None]
  - Temporal arteritis [None]
  - Myalgia [None]
  - Malaise [None]
  - Feeling abnormal [None]
  - Neck pain [None]
  - Body height decreased [None]
  - Eating disorder [None]
  - Condition aggravated [None]
